FAERS Safety Report 15296649 (Version 2)
Quarter: 2018Q4

REPORT INFORMATION
  Report Type: Spontaneous
  Country: AU (occurrence: AU)
  Receive Date: 20180820
  Receipt Date: 20181018
  Transmission Date: 20190204
  Serious: Yes (Hospitalization, Other)
  Sender: FDA-Public Use
  Company Number: AU-SAKK-2018SA205487AA

PATIENT
  Age: 83 Year
  Sex: Female

DRUGS (8)
  1. SIMVASTATIN. [Concomitant]
     Active Substance: SIMVASTATIN
     Dosage: 10 MG
  2. IRBESARTAN. [Concomitant]
     Active Substance: IRBESARTAN
     Dosage: 150 MG
  3. TIOTROPIUM [Concomitant]
     Active Substance: TIOTROPIUM
     Dosage: 5 UG
     Route: 055
  4. CHOLECALCIFEROL [Concomitant]
     Active Substance: CHOLECALCIFEROL
     Dosage: 2000 U
  5. ENOXAPARIN SODIUM. [Suspect]
     Active Substance: ENOXAPARIN SODIUM
     Indication: PULMONARY EMBOLISM
     Dosage: 60 MG, BID
     Route: 058
  6. ASPIRIN (E.C.) [Concomitant]
     Active Substance: ASPIRIN
     Dosage: 100 MG
  7. CITALOPRAM [Concomitant]
     Active Substance: CITALOPRAM HYDROBROMIDE
     Dosage: 40 MG
  8. PARACETAMOL [Concomitant]
     Active Substance: ACETAMINOPHEN
     Dosage: 1 G, QID

REACTIONS (6)
  - Abdominal wall haematoma [Recovered/Resolved]
  - Pneumonia [Recovered/Resolved]
  - Ureteric obstruction [Recovered/Resolved]
  - Dizziness [Recovered/Resolved]
  - Red blood cell count increased [Recovered/Resolved]
  - Abdominal pain [Recovered/Resolved]
